FAERS Safety Report 8089741-5 (Version None)
Quarter: 2012Q1

REPORT INFORMATION
  Report Type: 
  Country: None (occurrence: None)
  Receive Date: 20120128
  Receipt Date: 20110630
  Transmission Date: 20120608
  Serious: Yes (Other)
  Sender: FDA-Public Use
  Company Number: US-ABBOTT-11P-163-0836126-00

PATIENT
  Sex: Female

DRUGS (5)
  1. STOOL SOFTENER [Concomitant]
     Indication: CONSTIPATION
  2. LEVOTHYROXINE SODIUM [Concomitant]
     Indication: HYPOTHYROIDISM
  3. HUMIRA [Suspect]
     Indication: PSORIATIC ARTHROPATHY
     Dates: start: 20070901
  4. HUMIRA [Suspect]
     Indication: PSORIATIC ARTHROPATHY
     Dates: start: 20051101, end: 20061101
  5. HUMIRA [Suspect]
     Dates: start: 20070901, end: 20080101

REACTIONS (7)
  - DRUG INEFFECTIVE [None]
  - BLOOD CHOLESTEROL INCREASED [None]
  - OEDEMA PERIPHERAL [None]
  - PSORIASIS [None]
  - BREAST CANCER [None]
  - INJECTION SITE PAIN [None]
  - ARTHRITIS [None]
